FAERS Safety Report 25057648 (Version 2)
Quarter: 2025Q2

REPORT INFORMATION
  Report Type: Spontaneous
  Country: US (occurrence: US)
  Receive Date: 20250310
  Receipt Date: 20250604
  Transmission Date: 20250717
  Serious: No
  Sender: ARS PHARMACEUTICALS OPERATIONS, INC.
  Company Number: US-ARS PHARMACEUTICALS OPERATIONS, INC.-2024ARP00013

PATIENT
  Sex: Female

DRUGS (3)
  1. NEFFY [Suspect]
     Active Substance: EPINEPHRINE
     Indication: Hypersensitivity
     Route: 045
     Dates: start: 202411, end: 202411
  2. FLONASE [Concomitant]
     Active Substance: FLUTICASONE PROPIONATE
  3. UNSPECIFIED NASAL SPRAYS [Concomitant]

REACTIONS (1)
  - Rhinalgia [Recovered/Resolved]

NARRATIVE: CASE EVENT DATE: 20241101
